FAERS Safety Report 6485613-8 (Version None)
Quarter: 2009Q4

REPORT INFORMATION
  Report Type: 
  Country: None (occurrence: None)
  Receive Date: 20091209
  Receipt Date: 20090702
  Transmission Date: 20100525
  Serious: No
  Sender: FDA-Public Use
  Company Number: US-AMGEN-KDL354197

PATIENT
  Sex: Female

DRUGS (2)
  1. ENBREL [Suspect]
     Indication: PSORIATIC ARTHROPATHY
     Route: 058
     Dates: start: 20050525
  2. ENBREL [Suspect]
     Indication: PSORIASIS

REACTIONS (3)
  - OEDEMA PERIPHERAL [None]
  - PSORIASIS [None]
  - WALKING AID USER [None]
